FAERS Safety Report 14247102 (Version 16)
Quarter: 2021Q4

REPORT INFORMATION
  Report Type: Spontaneous
  Country: US (occurrence: US)
  Receive Date: 20171204
  Receipt Date: 20211207
  Transmission Date: 20220303
  Serious: Yes (Other)
  Sender: FDA-Public Use
  Company Number: US-PFIZER INC-2017514619

PATIENT
  Age: 73 Year
  Sex: Female
  Weight: 54.43 kg

DRUGS (5)
  1. ZITHROMAX [Suspect]
     Active Substance: AZITHROMYCIN DIHYDRATE
     Indication: Osteomyelitis
     Dosage: 250 MG, DAILY
     Route: 048
     Dates: end: 202002
  2. ZITHROMAX [Suspect]
     Active Substance: AZITHROMYCIN DIHYDRATE
     Indication: Antibiotic prophylaxis
     Dosage: 500 MG, 1X/DAY (250 MG, 2 TABLETS DAY 1)
     Route: 048
  3. ZITHROMAX [Suspect]
     Active Substance: AZITHROMYCIN DIHYDRATE
     Dosage: 250 MG, 1X/DAY (1 TABLET FOR 4 DAYS)
     Route: 048
  4. ZITHROMAX [Suspect]
     Active Substance: AZITHROMYCIN DIHYDRATE
     Dosage: 250 MG, AS NEEDED (ONLY TAKES WHEN NEEDED)
     Route: 048
  5. ZITHROMAX [Suspect]
     Active Substance: AZITHROMYCIN DIHYDRATE
     Dosage: 500 MG, 1 HOUR BEFORE ANY DENTAL PROCEDURE

REACTIONS (11)
  - Spinal cord compression [Unknown]
  - Off label use [Unknown]
  - Malaise [Unknown]
  - Poor quality sleep [Unknown]
  - Body height decreased [Unknown]
  - Gallbladder disorder [Unknown]
  - Neck injury [Unknown]
  - Communication disorder [Unknown]
  - Thinking abnormal [Unknown]
  - Sinusitis [Unknown]
  - Hypersensitivity [Unknown]
